FAERS Safety Report 6971955-6 (Version None)
Quarter: 2010Q3

REPORT INFORMATION
  Report Type: 
  Country: None (occurrence: None)
  Receive Date: 20100908
  Receipt Date: 20100908
  Transmission Date: 20110219
  Serious: Yes (Other)
  Sender: FDA-Public Use
  Company Number: None

PATIENT
  Age: 58 Year
  Sex: Male
  Weight: 80.7403 kg

DRUGS (1)
  1. NORCO [Suspect]
     Indication: PAIN
     Dosage: 7.5/325MG ONE Q4-6H ORAL
     Route: 048
     Dates: start: 20030122, end: 20090924

REACTIONS (3)
  - BLISTER [None]
  - OEDEMA PERIPHERAL [None]
  - RASH [None]
